FAERS Safety Report 5295470-3 (Version None)
Quarter: 2007Q2

REPORT INFORMATION
  Report Type: 
  Country: None (occurrence: None)
  Receive Date: 20070412
  Receipt Date: 20070406
  Transmission Date: 20071010
  Serious: Yes (Other)
  Sender: FDA-Public Use
  Company Number: JP-MERCK-0702USA02463

PATIENT
  Age: 59 Year
  Sex: Female
  Weight: 45 kg

DRUGS (3)
  1. FOSAMAX [Suspect]
     Indication: OSTEOPOROSIS
     Route: 048
     Dates: start: 20070112, end: 20070101
  2. DEPAS [Concomitant]
     Indication: INSOMNIA
     Route: 048
     Dates: start: 20061201
  3. DEPAS [Concomitant]
     Indication: NECK PAIN
     Route: 048
     Dates: start: 20061201

REACTIONS (4)
  - ABDOMINAL PAIN UPPER [None]
  - BACK PAIN [None]
  - BONE PAIN [None]
  - CHILLS [None]
